FAERS Safety Report 24713865 (Version 1)
Quarter: 2024Q4

REPORT INFORMATION
  Report Type: Spontaneous
  Country: US (occurrence: US)
  Receive Date: 20241209
  Receipt Date: 20241209
  Transmission Date: 20250115
  Serious: No
  Sender: REGENERON
  Company Number: US-REGENERON PHARMACEUTICALS, INC.-2024-067981

PATIENT
  Sex: Female

DRUGS (3)
  1. EYLEA [Suspect]
     Active Substance: AFLIBERCEPT
     Indication: Diabetic retinopathy
     Dosage: 2 MG, FIRST INJECTION (FORMULATION: PFS GERRESHEIMER; STRENGTH: 2MG/0.05ML)
     Dates: start: 20240304, end: 20240304
  2. EYLEA [Suspect]
     Active Substance: AFLIBERCEPT
     Indication: Vitreous haemorrhage
     Dosage: 2 MG, SECOND INJECTION (FORMULATION: PFS GERRESHEIMER; STRENGTH: 2MG/0.05ML)
     Dates: start: 20240408, end: 20240408
  3. EYLEA [Suspect]
     Active Substance: AFLIBERCEPT
     Dosage: 2 MG, THIRD INJECTION (FORMULATION: PFS GERRESHEIMER; STRENGTH: 2MG/0.05ML)
     Dates: start: 20240506

REACTIONS (2)
  - Off label use [Not Recovered/Not Resolved]
  - Wrong technique in product usage process [Unknown]

NARRATIVE: CASE EVENT DATE: 20240304
